FAERS Safety Report 8988400 (Version 1)
Quarter: 2012Q4

REPORT INFORMATION
  Report Type: Spontaneous
  Country: US (occurrence: None)
  Receive Date: 20121221
  Receipt Date: 20121221
  Transmission Date: 20130627
  Serious: No
  Sender: FDA-Public Use
  Company Number: None

PATIENT

DRUGS (1)
  1. GENERIC ADDLERALL XR 20 MG [Suspect]
     Indication: ADHD
     Route: 048
     Dates: start: 2010

REACTIONS (2)
  - Drug ineffective [None]
  - Product substitution issue [None]
